APPROVED DRUG PRODUCT: CARBAMAZEPINE
Active Ingredient: CARBAMAZEPINE
Strength: 200MG
Dosage Form/Route: TABLET;ORAL
Application: A070429 | Product #001
Applicant: WARNER CHILCOTT DIV WARNER LAMBERT CO
Approved: Jan 2, 1987 | RLD: No | RS: No | Type: DISCN